FAERS Safety Report 10246366 (Version 1)
Quarter: 2014Q2

REPORT INFORMATION
  Report Type: Spontaneous
  Country: US (occurrence: US)
  Receive Date: 20140619
  Receipt Date: 20140619
  Transmission Date: 20141212
  Serious: No
  Sender: FDA-Public Use
  Company Number: US-PFIZER INC-2014165987

PATIENT
  Sex: Female

DRUGS (3)
  1. AMLODIPINE BESILATE [Suspect]
     Dosage: UNK
  2. NATURE MADE MULTI-VITAMIN [Concomitant]
     Dosage: UNK
  3. CALCIUM WITH D3 [Concomitant]
     Dosage: UNK

REACTIONS (2)
  - Diarrhoea [Unknown]
  - Abdominal pain upper [Unknown]
